FAERS Safety Report 23566646 (Version 1)
Quarter: 2024Q1

REPORT INFORMATION
  Report Type: Spontaneous
  Country: US (occurrence: US)
  Receive Date: 20240226
  Receipt Date: 20240226
  Transmission Date: 20240410
  Serious: No
  Sender: FDA-Public Use
  Company Number: US-AMNEAL PHARMACEUTICALS-2023-AMRX-00998

PATIENT
  Sex: Female
  Weight: 61.224 kg

DRUGS (2)
  1. RYTARY [Suspect]
     Active Substance: CARBIDOPA\LEVODOPA
     Indication: Product used for unknown indication
     Dosage: 3 (195/48.75 MG) CAPSULES, TID
     Route: 048
     Dates: start: 20230217, end: 202303
  2. AMLODIPINE BESYLATE [Concomitant]
     Active Substance: AMLODIPINE BESYLATE
     Indication: Hypertension
     Dosage: 5 MG, ONCE A DAY
     Route: 048

REACTIONS (2)
  - Feeling abnormal [Unknown]
  - Drug effect less than expected [Unknown]
